FAERS Safety Report 6844856-1 (Version None)
Quarter: 2010Q3

REPORT INFORMATION
  Report Type: 
  Country: None (occurrence: None)
  Receive Date: 20100715
  Receipt Date: 20100701
  Transmission Date: 20110219
  Serious: Yes (Hospitalization)
  Sender: FDA-Public Use
  Company Number: GB-MYLANLABS-2010S1007892

PATIENT
  Age: 73 Year
  Sex: Male

DRUGS (9)
  1. LANSOPRAZOLE [Suspect]
     Indication: PRODUCT USED FOR UNKNOWN INDICATION
     Dates: start: 20100212, end: 20100310
  2. RANEXA [Suspect]
     Indication: ANGINA PECTORIS
     Route: 048
     Dates: start: 20100212, end: 20100301
  3. BISOPROLOL [Concomitant]
     Indication: ANGINA PECTORIS
  4. FUROSEMIDE [Concomitant]
     Indication: LEFT VENTRICULAR FAILURE
     Dates: start: 20080101
  5. IMDUR [Concomitant]
     Indication: ANGINA PECTORIS
     Dates: start: 20080101
  6. LISINOPRIL [Concomitant]
     Indication: HYPERTENSION
     Dates: start: 20080101
  7. NICORANDIL [Concomitant]
     Indication: ANGINA PECTORIS
     Dates: start: 20080101
  8. NOVOMIX /01475801/ [Concomitant]
     Indication: DIABETES MELLITUS
     Dates: start: 20080101
  9. PERSANTINE [Concomitant]
     Indication: CEREBROVASCULAR ACCIDENT
     Dates: start: 20080101

REACTIONS (3)
  - LIVER FUNCTION TEST ABNORMAL [None]
  - MALAISE [None]
  - VASCULITIC RASH [None]
